FAERS Safety Report 6112985-6 (Version None)
Quarter: 2009Q1

REPORT INFORMATION
  Report Type: 
  Country: None (occurrence: None)
  Receive Date: 20090312
  Receipt Date: 20090305
  Transmission Date: 20090719
  Serious: Yes (Congenital Anomaly)
  Sender: FDA-Public Use
  Company Number: A0681272A

PATIENT
  Sex: Male

DRUGS (3)
  1. PAXIL [Suspect]
     Dosage: 20MG PER DAY
     Dates: start: 19990101, end: 20010101
  2. ZOLOFT [Concomitant]
     Dates: start: 19990101, end: 20010101
  3. VITAMIN TAB [Concomitant]

REACTIONS (5)
  - ATRIAL SEPTAL DEFECT [None]
  - DIGEORGE'S SYNDROME [None]
  - DRUG EXPOSURE DURING PREGNANCY [None]
  - MULTIPLE CONGENITAL ABNORMALITIES [None]
  - VENTRICULAR SEPTAL DEFECT [None]
